FAERS Safety Report 9204173 (Version 1)
Quarter: 2013Q2

REPORT INFORMATION
  Report Type: Spontaneous
  Country: PL (occurrence: PL)
  Receive Date: 20130402
  Receipt Date: 20130402
  Transmission Date: 20140414
  Serious: Yes (Other)
  Sender: FDA-Public Use
  Company Number: PL-JNJFOC-20130318344

PATIENT
  Age: 8 Year
  Sex: Male

DRUGS (2)
  1. ZYRTEC [Suspect]
     Route: 048
  2. ZYRTEC [Suspect]
     Indication: DERMATITIS ALLERGIC
     Route: 048
     Dates: start: 20130317

REACTIONS (2)
  - Pain in extremity [Recovered/Resolved]
  - Off label use [Unknown]
